FAERS Safety Report 19724415 (Version 1)
Quarter: 2021Q3

REPORT INFORMATION
  Report Type: Report from Study
  Country: US (occurrence: US)
  Receive Date: 20210819
  Receipt Date: 20210819
  Transmission Date: 20211014
  Serious: Yes (Hospitalization)
  Sender: FDA-Public Use
  Company Number: US-MYLANLABS-2021M1053845

PATIENT
  Age: 6 Decade
  Sex: Male

DRUGS (8)
  1. CEFTAROLINE FOSAMIL [Suspect]
     Active Substance: CEFTAROLINE FOSAMIL
     Indication: OSTEOMYELITIS
  2. VANCOMYCIN [Suspect]
     Active Substance: VANCOMYCIN
     Indication: STAPHYLOCOCCAL BACTERAEMIA
     Dosage: UNK
     Route: 065
  3. VANCOMYCIN [Suspect]
     Active Substance: VANCOMYCIN
     Indication: OSTEOMYELITIS
  4. CEFTAROLINE FOSAMIL [Suspect]
     Active Substance: CEFTAROLINE FOSAMIL
     Indication: STAPHYLOCOCCAL BACTERAEMIA
     Dosage: UNK
     Route: 065
  5. ORITAVANCIN. [Suspect]
     Active Substance: ORITAVANCIN
     Indication: OSTEOMYELITIS
  6. DAPTOMYCIN. [Suspect]
     Active Substance: DAPTOMYCIN
     Indication: STAPHYLOCOCCAL BACTERAEMIA
     Dosage: UNK
     Route: 065
  7. DAPTOMYCIN. [Suspect]
     Active Substance: DAPTOMYCIN
     Indication: OSTEOMYELITIS
     Dosage: HIGH?DOSE; } 10 MG/KG
     Route: 065
  8. ORITAVANCIN. [Suspect]
     Active Substance: ORITAVANCIN
     Indication: STAPHYLOCOCCAL BACTERAEMIA
     Dosage: RECEIVED TWO INFUSIONS

REACTIONS (1)
  - Treatment failure [Unknown]
